FAERS Safety Report 11992016 (Version 1)
Quarter: 2016Q1

REPORT INFORMATION
  Report Type: Spontaneous
  Country: US (occurrence: None)
  Receive Date: 20160202
  Receipt Date: 20160202
  Transmission Date: 20160526
  Serious: Yes (Other)
  Sender: FDA-Public Use
  Company Number: None

PATIENT
  Age: 40 Year
  Sex: Female
  Weight: 56.25 kg

DRUGS (1)
  1. TRI-SPRINTEC [Suspect]
     Active Substance: ETHINYL ESTRADIOL\NORGESTIMATE
     Indication: CONTRACEPTION
     Dosage: 28 PILLS ONCE DAILY TAKEN BY MOUTH
     Route: 048
     Dates: start: 20160117, end: 20160131

REACTIONS (2)
  - Hypoaesthesia [None]
  - Nausea [None]

NARRATIVE: CASE EVENT DATE: 20160118
